FAERS Safety Report 7036965-1 (Version None)
Quarter: 2010Q4

REPORT INFORMATION
  Report Type: 
  Country: None (occurrence: None)
  Receive Date: 20101011
  Receipt Date: 20101001
  Transmission Date: 20110411
  Serious: Yes (Hospitalization, Other)
  Sender: FDA-Public Use
  Company Number: PL-ROXANE LABORATORIES, INC.-2010-RO-01306RO

PATIENT
  Age: 52 Year
  Sex: Male

DRUGS (9)
  1. AZATHIOPRINE [Suspect]
     Indication: PEMPHIGUS
     Dosage: 150 MG
  2. PREDNISOLONE [Suspect]
     Indication: PEMPHIGUS
  3. PREDNISOLONE [Suspect]
     Dosage: 60 MG
  4. LINCOMYCIN [Suspect]
     Indication: PNEUMONIA
     Route: 042
  5. CORTICOSTEROIDS [Suspect]
     Indication: PEMPHIGUS
  6. ANTIBIOTICS [Suspect]
     Indication: PEMPHIGUS
  7. SILICONE [Suspect]
     Indication: PEMPHIGUS
  8. SILICONE [Suspect]
  9. NADROPARIN [Suspect]
     Indication: ISCHAEMIA

REACTIONS (4)
  - EXTRADURAL ABSCESS [None]
  - HAEMORRHAGIC STROKE [None]
  - PERIPHERAL ISCHAEMIA [None]
  - PNEUMONIA [None]
